FAERS Safety Report 20665725 (Version 1)
Quarter: 2022Q2

REPORT INFORMATION
  Report Type: Spontaneous
  Country: None (occurrence: US)
  Receive Date: 20220402
  Receipt Date: 20220402
  Transmission Date: 20220720
  Serious: Yes (Other)
  Sender: FDA-Public Use
  Company Number: US-Jiangsu Hengrui Medicine Co., Ltd.-2127348

PATIENT
  Age: 73 Year
  Sex: Female

DRUGS (6)
  1. CYCLOPHOSPHAMIDE [Suspect]
     Active Substance: CYCLOPHOSPHAMIDE
     Indication: Chronic lymphocytic leukaemia
  2. IBRUTINIB [Suspect]
     Active Substance: IBRUTINIB
  3. OBINUTUZUMAB [Suspect]
     Active Substance: OBINUTUZUMAB
  4. DOXORUBICIN [Suspect]
     Active Substance: DOXORUBICIN
  5. VINCRISTINE [Suspect]
     Active Substance: VINCRISTINE
  6. PREDNISONE [Suspect]
     Active Substance: PREDNISONE

REACTIONS (10)
  - Thrombocytopenia [Unknown]
  - Neutropenia [Recovered/Resolved]
  - Hypokalaemia [Unknown]
  - Anaemia [Unknown]
  - Hyperglycaemia [Unknown]
  - Blood alkaline phosphatase increased [Unknown]
  - Alanine aminotransferase increased [Unknown]
  - Aspartate aminotransferase increased [Unknown]
  - Diarrhoea [Unknown]
  - Fatigue [Unknown]
